APPROVED DRUG PRODUCT: CARBAGLU
Active Ingredient: CARGLUMIC ACID
Strength: 200MG
Dosage Form/Route: TABLET, FOR SUSPENSION;ORAL
Application: N022562 | Product #001 | TE Code: AB
Applicant: RECORDATI RARE DISEASES INC
Approved: Mar 18, 2010 | RLD: Yes | RS: Yes | Type: RX

EXCLUSIVITY:
Code: ODE-345 | Date: Jan 22, 2028